FAERS Safety Report 9545756 (Version 1)
Quarter: 2013Q3

REPORT INFORMATION
  Report Type: Spontaneous
  Country: GB (occurrence: GB)
  Receive Date: 20130923
  Receipt Date: 20130923
  Transmission Date: 20140515
  Serious: Yes (Other)
  Sender: FDA-Public Use
  Company Number: GB-ACTAVIS-2013-16495

PATIENT
  Sex: 0

DRUGS (1)
  1. LETROZOLE (UNKNOWN) [Suspect]
     Indication: BREAST CANCER
     Dosage: 2.5 MG, UNKNOWN
     Route: 065

REACTIONS (2)
  - Alopecia [Not Recovered/Not Resolved]
  - Adverse event [Unknown]
